FAERS Safety Report 21820728 (Version 1)
Quarter: 2023Q1

REPORT INFORMATION
  Report Type: Spontaneous
  Country: US (occurrence: US)
  Receive Date: 20230105
  Receipt Date: 20230105
  Transmission Date: 20230417
  Serious: No
  Sender: FDA-Public Use
  Company Number: US-SA-SAC20230102001034

PATIENT
  Age: 59 Year
  Sex: Male

DRUGS (4)
  1. ELOCTATE [Suspect]
     Active Substance: EFMOROCTOCOG ALFA
     Indication: Prophylaxis
     Dosage: 4500 U (+/-10%)
     Route: 065
  2. ELOCTATE [Suspect]
     Active Substance: EFMOROCTOCOG ALFA
     Indication: Prophylaxis
     Dosage: 4500 U (+/-10%)
     Route: 065
  3. ELOCTATE [Suspect]
     Active Substance: EFMOROCTOCOG ALFA
     Dosage: 4 DF (4 DOSES AS PRESCRIBED FOR PREVENTION)
     Dates: start: 202212, end: 202212
  4. ELOCTATE [Suspect]
     Active Substance: EFMOROCTOCOG ALFA
     Dosage: 4 DF (4 DOSES AS PRESCRIBED FOR PREVENTION)
     Dates: start: 202212, end: 202212

REACTIONS (1)
  - Gastric infection [Recovered/Resolved]

NARRATIVE: CASE EVENT DATE: 20221226
